FAERS Safety Report 20417923 (Version 2)
Quarter: 2022Q2

REPORT INFORMATION
  Report Type: Spontaneous
  Country: US (occurrence: US)
  Receive Date: 20220202
  Receipt Date: 20220520
  Transmission Date: 20220721
  Serious: No
  Sender: FDA-Public Use
  Company Number: US-SA-SAC20220128000334

PATIENT
  Age: 9 Year
  Sex: Female
  Weight: 50 kg

DRUGS (1)
  1. DUPIXENT [Suspect]
     Active Substance: DUPILUMAB
     Indication: Dermatitis atopic
     Dosage: 300 MG, QOW
     Route: 058
     Dates: start: 20220124

REACTIONS (2)
  - Hypertrichosis [Unknown]
  - Off label use [Unknown]

NARRATIVE: CASE EVENT DATE: 20220124
